FAERS Safety Report 11797119 (Version 3)
Quarter: 2016Q1

REPORT INFORMATION
  Report Type: Spontaneous
  Country: US (occurrence: US)
  Receive Date: 20151203
  Receipt Date: 20160303
  Transmission Date: 20160525
  Serious: No
  Sender: FDA-Public Use
  Company Number: US-WATSON-2015-21811

PATIENT
  Age: 31 Year
  Sex: Female

DRUGS (4)
  1. BUPRENORPHINE HYDROCHLORIDE AND NALOXONE HYDROCHLORIDE DIHYDRATE [Suspect]
     Active Substance: BUPRENORPHINE\NALOXONE
     Dosage: 1 DF, DAILY
     Route: 060
  2. BUPRENORPHINE HYDROCHLORIDE AND NALOXONE HYDROCHLORIDE DIHYDRATE [Suspect]
     Active Substance: BUPRENORPHINE\NALOXONE
     Dosage: 1 DF, DAILY
     Route: 048
  3. ALBUTEROL                          /00139501/ [Concomitant]
     Active Substance: ALBUTEROL
     Indication: PRODUCT USED FOR UNKNOWN INDICATION
     Dosage: UNK, UNKNOWN
     Route: 065
  4. BUPRENORPHINE HYDROCHLORIDE AND NALOXONE HYDROCHLORIDE DIHYDRATE [Suspect]
     Active Substance: BUPRENORPHINE\NALOXONE
     Indication: DRUG ABUSE
     Dosage: 1 DF, DAILY
     Route: 048

REACTIONS (7)
  - Flushing [Recovered/Resolved]
  - Erythema [Recovered/Resolved]
  - Pruritus generalised [Recovered/Resolved]
  - Feeling abnormal [Recovered/Resolved]
  - Nausea [Recovered/Resolved]
  - Pruritus [Recovered/Resolved]
  - Hypoaesthesia oral [Recovered/Resolved]

NARRATIVE: CASE EVENT DATE: 201509
